FAERS Safety Report 6032390-0 (Version None)
Quarter: 2009Q1

REPORT INFORMATION
  Report Type: 
  Country: None (occurrence: None)
  Receive Date: 20090109
  Receipt Date: 20090106
  Transmission Date: 20090719
  Serious: Yes (Hospitalization)
  Sender: FDA-Public Use
  Company Number: US-ASTRAZENECA-2009UW00369

PATIENT
  Age: 20365 Day
  Sex: Female
  Weight: 87.1 kg

DRUGS (14)
  1. SEROQUEL XR [Suspect]
     Indication: BIPOLAR DISORDER
     Route: 048
     Dates: start: 20081201, end: 20081201
  2. SEROQUEL XR [Suspect]
     Indication: BIPOLAR I DISORDER
     Route: 048
     Dates: start: 20081201, end: 20081201
  3. SEROQUEL [Concomitant]
     Indication: BIPOLAR DISORDER
     Route: 048
     Dates: start: 20080201, end: 20081201
  4. SEROQUEL [Concomitant]
     Indication: BIPOLAR I DISORDER
     Route: 048
     Dates: start: 20080201, end: 20081201
  5. SEROQUEL [Concomitant]
     Route: 048
     Dates: start: 20081201
  6. SEROQUEL [Concomitant]
     Route: 048
     Dates: start: 20081201
  7. PLAVIX [Concomitant]
  8. SIMVASTATIN [Concomitant]
  9. METOPROLOL TARTRATE [Concomitant]
  10. CYMBALTA [Concomitant]
  11. KLONOPIN [Concomitant]
  12. BONIVA [Concomitant]
  13. VALTREX [Concomitant]
  14. VICODIN [Concomitant]
     Indication: PAIN
     Dosage: PRN

REACTIONS (1)
  - MYOCARDIAL INFARCTION [None]
